FAERS Safety Report 26096678 (Version 1)
Quarter: 2025Q4

REPORT INFORMATION
  Report Type: Spontaneous
  Country: US (occurrence: US)
  Receive Date: 20251127
  Receipt Date: 20251127
  Transmission Date: 20260117
  Serious: Yes (Death, Other)
  Sender: VERO BIOTECH
  Company Number: US-VEROBIOTECH-2025USVEROSPO00314

PATIENT
  Age: 60 Year
  Sex: Female

DRUGS (1)
  1. GENOSYL [Suspect]
     Active Substance: NITRIC OXIDE
     Indication: Product used for unknown indication
     Dosage: 40 PPM
     Dates: start: 20251030, end: 20251103

REACTIONS (2)
  - Cardiac arrest [Fatal]
  - Pulmonary hypertension [Unknown]

NARRATIVE: CASE EVENT DATE: 20251103
